FAERS Safety Report 13390704 (Version 2)
Quarter: 2017Q2

REPORT INFORMATION
  Report Type: Spontaneous
  Country: US (occurrence: US)
  Receive Date: 20170331
  Receipt Date: 20170411
  Transmission Date: 20170830
  Serious: Yes (Life-Threatening)
  Sender: FDA-Public Use
  Company Number: PHHY2017US048289

PATIENT
  Age: 35 Year
  Sex: Male

DRUGS (4)
  1. PAZOPANIB [Suspect]
     Active Substance: PAZOPANIB
     Indication: METASTATIC RENAL CELL CARCINOMA
     Dosage: 800 MG, QD
     Route: 065
  2. PREDNISONE. [Suspect]
     Active Substance: PREDNISONE
     Indication: SYSTEMIC LUPUS ERYTHEMATOSUS
     Route: 065
  3. AZATHIOPRINE. [Suspect]
     Active Substance: AZATHIOPRINE
     Indication: SYSTEMIC LUPUS ERYTHEMATOSUS
     Route: 065
  4. HYDROXYCHLOROQUINE [Concomitant]
     Active Substance: HYDROXYCHLOROQUINE
     Indication: PRODUCT USED FOR UNKNOWN INDICATION
     Route: 065

REACTIONS (29)
  - Histiocytosis haematophagic [Unknown]
  - Influenza like illness [Unknown]
  - Blood lactic acid increased [Recovering/Resolving]
  - Rhabdomyolysis [Unknown]
  - Malaise [Unknown]
  - Headache [Unknown]
  - Oropharyngeal pain [Unknown]
  - Liver function test abnormal [Unknown]
  - Agitation [Unknown]
  - Dyspnoea [Unknown]
  - Neck pain [Unknown]
  - Asthenia [Unknown]
  - Pancytopenia [Recovering/Resolving]
  - Procalcitonin increased [Unknown]
  - Lipase increased [Unknown]
  - Urinary retention [Unknown]
  - Chills [Recovered/Resolved]
  - Thrombocytopenia [Recovering/Resolving]
  - Diarrhoea [Unknown]
  - Hyponatraemia [Recovering/Resolving]
  - Abdominal rigidity [Unknown]
  - Coagulopathy [Recovering/Resolving]
  - Pyrexia [Recovered/Resolved]
  - Acute kidney injury [Unknown]
  - Mental status changes [Recovered/Resolved]
  - Meningitis [Recovered/Resolved]
  - Nausea [Unknown]
  - Vomiting [Unknown]
  - Hepatosplenomegaly [Unknown]
